FAERS Safety Report 10447819 (Version 1)
Quarter: 2014Q3

REPORT INFORMATION
  Report Type: Spontaneous
  Country: DE (occurrence: DE)
  Receive Date: 20140911
  Receipt Date: 20140911
  Transmission Date: 20150326
  Serious: Yes (Congenital Anomaly, Other)
  Sender: FDA-Public Use
  Company Number: DE-TEVA-506677GER

PATIENT
  Age: 1 Day
  Sex: Female
  Weight: 3.5 kg

DRUGS (6)
  1. TREVILOR RETARD [Suspect]
     Active Substance: VENLAFAXINE HYDROCHLORIDE
     Route: 064
  2. BUSCOPAN [Suspect]
     Active Substance: BUTYLSCOPOLAMINE BROMIDE
     Route: 064
  3. TAVOR [Suspect]
     Active Substance: LORAZEPAM
     Route: 064
  4. MIRTAZAPINE. [Suspect]
     Active Substance: MIRTAZAPINE
     Route: 064
  5. FOLSAEURE [Concomitant]
     Active Substance: FOLIC ACID
     Route: 064
  6. DOLANTINA [Suspect]
     Active Substance: MEPERIDINE HYDROCHLORIDE
     Route: 064

REACTIONS (8)
  - Atrial septal defect [Unknown]
  - Foetal exposure during pregnancy [Unknown]
  - Convulsion neonatal [Recovered/Resolved]
  - Cardiac arrest neonatal [Recovered/Resolved]
  - Encephalopathy neonatal [Unknown]
  - Patent ductus arteriosus [Unknown]
  - Hypotonia neonatal [Recovered/Resolved]
  - Neonatal asphyxia [Recovered/Resolved]

NARRATIVE: CASE EVENT DATE: 20130320
